FAERS Safety Report 23278855 (Version 3)
Quarter: 2024Q3

REPORT INFORMATION
  Report Type: Spontaneous
  Country: JP (occurrence: JP)
  Receive Date: 20231208
  Receipt Date: 20240703
  Transmission Date: 20241016
  Serious: Yes (Hospitalization)
  Sender: EISAI
  Company Number: JP-Eisai-202306836_LEN-HCC_P_1

PATIENT
  Age: 79 Year
  Sex: Male
  Weight: 60 kg

DRUGS (3)
  1. LENVIMA [Suspect]
     Active Substance: LENVATINIB
     Indication: Hepatocellular carcinoma
     Route: 048
     Dates: start: 20230713, end: 20230729
  2. DURVALUMAB [Suspect]
     Active Substance: DURVALUMAB
     Indication: Hepatocellular carcinoma
     Dosage: DOSE AND FREQUENCY UNKNOWN
     Route: 065
     Dates: end: 20230615
  3. TREMELIMUMAB [Suspect]
     Active Substance: TREMELIMUMAB
     Indication: Hepatocellular carcinoma
     Dosage: DOSE AND FREQUENCY UNKNOWN
     Route: 065
     Dates: end: 20230615

REACTIONS (1)
  - Intestinal ischaemia [Recovered/Resolved]

NARRATIVE: CASE EVENT DATE: 20230729
